FAERS Safety Report 4707424-3 (Version None)
Quarter: 2005Q3

REPORT INFORMATION
  Report Type: 
  Country: None (occurrence: None)
  Receive Date: 20050701
  Receipt Date: 20050620
  Transmission Date: 20060218
  Serious: Yes (Hospitalization)
  Sender: FDA-Public Use
  Company Number: 214108

PATIENT
  Age: 58 Year
  Sex: Male
  Weight: 72 kg

DRUGS (25)
  1. MABTHERA (RITUXIMAB) CONC FOR SOLUTION FOR INFUSION [Suspect]
     Indication: NON-HODGKIN'S LYMPHOMA
     Dosage: 712 MG, INTRAVENOUS
     Route: 042
     Dates: start: 20031219, end: 20031219
  2. MABTHERA (RITUXIMAB) CONC FOR SOLUTION FOR INFUSION [Suspect]
     Indication: NON-HODGKIN'S LYMPHOMA
     Dosage: 712 MG, INTRAVENOUS
     Route: 042
     Dates: end: 20040116
  3. MABTHERA (RITUXIMAB) CONC FOR SOLUTION FOR INFUSION [Suspect]
     Indication: NON-HODGKIN'S LYMPHOMA
     Dosage: 712 MG, INTRAVENOUS
     Route: 042
     Dates: end: 20040205
  4. MABTHERA (RITUXIMAB) CONC FOR SOLUTION FOR INFUSION [Suspect]
     Indication: NON-HODGKIN'S LYMPHOMA
     Dosage: 712 MG, INTRAVENOUS
     Route: 042
     Dates: end: 20040226
  5. MABTHERA (RITUXIMAB) CONC FOR SOLUTION FOR INFUSION [Suspect]
     Indication: NON-HODGKIN'S LYMPHOMA
     Dosage: 712 MG, INTRAVENOUS
     Route: 042
     Dates: end: 20040324
  6. CYCLOPHOSPHAMIDE [Suspect]
     Indication: NON-HODGKIN'S LYMPHOMA
     Dosage: 1425 MG, INTRAVENOUS
     Route: 042
     Dates: start: 20031219, end: 20031219
  7. CYCLOPHOSPHAMIDE [Suspect]
     Indication: NON-HODGKIN'S LYMPHOMA
     Dosage: 1425 MG, INTRAVENOUS
     Route: 042
     Dates: end: 20040116
  8. CYCLOPHOSPHAMIDE [Suspect]
     Indication: NON-HODGKIN'S LYMPHOMA
     Dosage: 1425 MG, INTRAVENOUS
     Route: 042
     Dates: end: 20040205
  9. CYCLOPHOSPHAMIDE [Suspect]
     Indication: NON-HODGKIN'S LYMPHOMA
     Dosage: 1425 MG, INTRAVENOUS
     Route: 042
     Dates: end: 20040226
  10. CYCLOPHOSPHAMIDE [Suspect]
     Indication: NON-HODGKIN'S LYMPHOMA
     Dosage: 1425 MG, INTRAVENOUS
     Route: 042
     Dates: end: 20040324
  11. DOXORUBICIN HCL [Suspect]
     Indication: NON-HODGKIN'S LYMPHOMA
     Dosage: 95 MG, INTRAVENOUS
     Route: 042
     Dates: start: 20031219, end: 20031219
  12. DOXORUBICIN HCL [Suspect]
     Indication: NON-HODGKIN'S LYMPHOMA
     Dosage: 95 MG, INTRAVENOUS
     Route: 042
     Dates: end: 20040116
  13. DOXORUBICIN HCL [Suspect]
     Indication: NON-HODGKIN'S LYMPHOMA
     Dosage: 95 MG, INTRAVENOUS
     Route: 042
     Dates: end: 20040205
  14. DOXORUBICIN HCL [Suspect]
     Indication: NON-HODGKIN'S LYMPHOMA
     Dosage: 95 MG, INTRAVENOUS
     Route: 042
     Dates: end: 20040224
  15. DOXORUBICIN HCL [Suspect]
     Indication: NON-HODGKIN'S LYMPHOMA
     Dosage: 95 MG, INTRAVENOUS
     Route: 042
     Dates: end: 20040324
  16. VINCRISTINE [Suspect]
     Indication: NON-HODGKIN'S LYMPHOMA
     Dosage: 2 MG, INTRAVENOUS
     Route: 042
     Dates: start: 20031219, end: 20031219
  17. VINCRISTINE [Suspect]
     Indication: NON-HODGKIN'S LYMPHOMA
     Dosage: 2 MG, INTRAVENOUS
     Route: 042
     Dates: end: 20040116
  18. VINCRISTINE [Suspect]
     Indication: NON-HODGKIN'S LYMPHOMA
     Dosage: 2 MG, INTRAVENOUS
     Route: 042
     Dates: end: 20040205
  19. VINCRISTINE [Suspect]
     Indication: NON-HODGKIN'S LYMPHOMA
     Dosage: 2 MG, INTRAVENOUS
     Route: 042
     Dates: end: 20040226
  20. VINCRISTINE [Suspect]
     Indication: NON-HODGKIN'S LYMPHOMA
     Dosage: 2 MG, INTRAVENOUS
     Route: 042
     Dates: end: 20040324
  21. PREDNISONE [Suspect]
     Indication: NON-HODGKIN'S LYMPHOMA
     Dosage: 500 MG, ORAL
     Route: 048
     Dates: start: 20031219, end: 20031219
  22. PREDNISONE [Suspect]
     Indication: NON-HODGKIN'S LYMPHOMA
     Dosage: 500 MG, ORAL
     Route: 048
     Dates: end: 20040116
  23. PREDNISONE [Suspect]
     Indication: NON-HODGKIN'S LYMPHOMA
     Dosage: 500 MG, ORAL
     Route: 048
     Dates: end: 20040205
  24. PREDNISONE [Suspect]
     Indication: NON-HODGKIN'S LYMPHOMA
     Dosage: 500 MG, ORAL
     Route: 048
     Dates: end: 20040226
  25. PREDNISONE [Suspect]
     Indication: NON-HODGKIN'S LYMPHOMA
     Dosage: 500 MG, ORAL
     Route: 048
     Dates: end: 20050324

REACTIONS (4)
  - ANAEMIA [None]
  - FALL [None]
  - FEBRILE NEUTROPENIA [None]
  - LOWER RESPIRATORY TRACT INFECTION [None]
